FAERS Safety Report 19115311 (Version 1)
Quarter: 2021Q2

REPORT INFORMATION
  Report Type: Spontaneous
  Country: US (occurrence: US)
  Receive Date: 20210409
  Receipt Date: 20210409
  Transmission Date: 20210717
  Serious: Yes (Hospitalization, Other)
  Sender: FDA-Public Use
  Company Number: US-CADILA HEALTHCARE LIMITED-US-ZYDUS-064280

PATIENT

DRUGS (14)
  1. HALOPERIDOL. [Suspect]
     Active Substance: HALOPERIDOL
     Dosage: TAPERED OFF
     Route: 065
  2. LORAZEPAM. [Concomitant]
     Active Substance: LORAZEPAM
     Indication: PSYCHOTIC DISORDER
     Dosage: 11 MILLIGRAM, QD
     Route: 042
  3. LORAZEPAM. [Concomitant]
     Active Substance: LORAZEPAM
     Dosage: 4.5 MILLIGRAM, QD
  4. LORAZEPAM. [Concomitant]
     Active Substance: LORAZEPAM
     Dosage: 3 MILLIGRAM, QD
  5. HALOPERIDOL. [Suspect]
     Active Substance: HALOPERIDOL
     Indication: PSYCHOTIC DISORDER
     Dosage: 5 MILLIGRAM, BID
     Route: 065
  6. AMANTADINE. [Suspect]
     Active Substance: AMANTADINE HYDROCHLORIDE
     Dosage: UNK
     Route: 065
  7. LORAZEPAM. [Concomitant]
     Active Substance: LORAZEPAM
     Dosage: 9 MILLIGRAM, QD
     Route: 065
  8. MIRTAZAPINE. [Suspect]
     Active Substance: MIRTAZAPINE
     Indication: PSYCHOTIC DISORDER
     Dosage: UNK
     Route: 065
  9. DANTROLENE. [Suspect]
     Active Substance: DANTROLENE SODIUM
     Indication: NEUROLEPTIC MALIGNANT SYNDROME
     Dosage: 2 MILLIGRAM/KILOGRAM, QID
     Route: 065
  10. CARBIDOPA/LEVODOPA [Suspect]
     Active Substance: CARBIDOPA\LEVODOPA
     Indication: NEUROLEPTIC MALIGNANT SYNDROME
     Dosage: UNK
     Route: 065
  11. LORAZEPAM. [Concomitant]
     Active Substance: LORAZEPAM
     Dosage: 10 MILLIGRAM, QD
     Route: 065
  12. FLUVOXAMINE [Suspect]
     Active Substance: FLUVOXAMINE
     Indication: PSYCHOTIC DISORDER
     Dosage: UNK
     Route: 065
  13. DANTROLENE. [Suspect]
     Active Substance: DANTROLENE SODIUM
     Dosage: UNK (DOSE INCRESED)
     Route: 065
  14. LORAZEPAM. [Concomitant]
     Active Substance: LORAZEPAM
     Dosage: 1 MILLIGRAM

REACTIONS (2)
  - Drug ineffective [Recovered/Resolved]
  - Neuroleptic malignant syndrome [Recovered/Resolved]
